FAERS Safety Report 25990691 (Version 2)
Quarter: 2025Q4

REPORT INFORMATION
  Report Type: Spontaneous
  Country: US (occurrence: US)
  Receive Date: 20251103
  Receipt Date: 20251212
  Transmission Date: 20260118
  Serious: Yes (Death)
  Sender: TAIHO ONCOLOGY INC
  Company Number: US-TAIHOP-2025-011832

PATIENT
  Age: 83 Year
  Sex: Male

DRUGS (1)
  1. INQOVI [Suspect]
     Active Substance: CEDAZURIDINE\DECITABINE
     Indication: Chronic myelomonocytic leukaemia
     Dosage: 135 MG (DECITABINE 35 MG PLUS CEDAZURIDINE 100 MG) ON DAYS 1-5 OF EACH 28-DAY CYCLE; CYCLE UNKNOWN
     Route: 048
     Dates: start: 202508

REACTIONS (1)
  - Subdural haematoma [Fatal]
